FAERS Safety Report 14315898 (Version 2)
Quarter: 2017Q4

REPORT INFORMATION
  Report Type: Spontaneous
  Country: US (occurrence: US)
  Receive Date: 20171221
  Receipt Date: 20171223
  Transmission Date: 20180321
  Serious: Yes (Hospitalization)
  Sender: FDA-Public Use
  Company Number: US-BRISTOL-MYERS SQUIBB COMPANY-BMS-2017-116358

PATIENT
  Age: 83 Year
  Sex: Female
  Weight: 64.41 kg

DRUGS (3)
  1. LYRICA [Suspect]
     Active Substance: PREGABALIN
     Indication: PROCEDURAL PAIN
     Dosage: 50 MG, BID
     Route: 048
     Dates: start: 20171204, end: 20171214
  2. LISINOPRIL. [Concomitant]
     Active Substance: LISINOPRIL
     Indication: HYPERTENSION
     Dosage: 40 MG, QD
     Route: 048
  3. ELIQUIS [Suspect]
     Active Substance: APIXABAN
     Indication: CEREBROVASCULAR ACCIDENT PROPHYLAXIS
     Dosage: 2.5 MG, BID
     Route: 048

REACTIONS (4)
  - Arthropathy [Recovered/Resolved]
  - Drug interaction [Unknown]
  - Restlessness [Not Recovered/Not Resolved]
  - Off label use [Unknown]

NARRATIVE: CASE EVENT DATE: 20171204
